FAERS Safety Report 7552191-1 (Version None)
Quarter: 2011Q2

REPORT INFORMATION
  Report Type: 
  Country: None (occurrence: None)
  Receive Date: 20110616
  Receipt Date: 20110607
  Transmission Date: 20111010
  Serious: Yes (Hospitalization, Disabling, Other)
  Sender: FDA-Public Use
  Company Number: US-MERCK-0903USA01375

PATIENT
  Age: 51 Year
  Sex: Female
  Weight: 80 kg

DRUGS (12)
  1. PREVACID NAPRAPAC 250 (COPACKAGED) [Concomitant]
     Route: 065
     Dates: start: 20050101
  2. VITAMIN D (UNSPECIFIED) [Concomitant]
     Route: 065
  3. FOSAMAX [Suspect]
     Indication: OSTEOPOROSIS PROPHYLAXIS
     Route: 048
     Dates: start: 19980101, end: 20040101
  4. FOSAMAX [Suspect]
     Route: 048
     Dates: start: 20020301, end: 20070601
  5. VITAMINS (UNSPECIFIED) [Concomitant]
     Route: 065
  6. CALCIUM (UNSPECIFIED) [Concomitant]
     Route: 065
  7. FOSAMAX [Suspect]
     Route: 048
     Dates: start: 20020301, end: 20070601
  8. SYNTHROID [Concomitant]
     Route: 065
     Dates: start: 19940101
  9. VITA C [Concomitant]
     Route: 065
  10. FOSAMAX [Suspect]
     Indication: OSTEOPOROSIS
     Route: 048
     Dates: start: 19980101, end: 20040101
  11. FOSAMAX PLUS D [Suspect]
     Indication: OSTEOPOROSIS PROPHYLAXIS
     Route: 048
     Dates: start: 20070601, end: 20081001
  12. MAGNESIUM (UNSPECIFIED) [Concomitant]
     Route: 065

REACTIONS (30)
  - ROTATOR CUFF SYNDROME [None]
  - FOOT FRACTURE [None]
  - NECK PAIN [None]
  - CARDIAC FAILURE CONGESTIVE [None]
  - FALL [None]
  - SPONDYLOLISTHESIS [None]
  - DENTAL CARIES [None]
  - OSTEOARTHRITIS [None]
  - BACK PAIN [None]
  - HYPERCHOLESTEROLAEMIA [None]
  - SPINAL FRACTURE [None]
  - FIBROMYALGIA [None]
  - EAR PAIN [None]
  - BREAST MASS [None]
  - EXOSTOSIS [None]
  - MITRAL VALVE INCOMPETENCE [None]
  - PNEUMONIA [None]
  - LUMBAR SPINAL STENOSIS [None]
  - BUNION [None]
  - EFFUSION [None]
  - SLEEP APNOEA SYNDROME [None]
  - BURSITIS [None]
  - GROIN PAIN [None]
  - PERIODONTITIS [None]
  - FEMUR FRACTURE [None]
  - COAGULATION TIME PROLONGED [None]
  - HYPERTENSION [None]
  - HYPERLIPIDAEMIA [None]
  - INTERVERTEBRAL DISC DEGENERATION [None]
  - DEPRESSION [None]
